FAERS Safety Report 6528278-9 (Version None)
Quarter: 2010Q1

REPORT INFORMATION
  Report Type: 
  Country: None (occurrence: None)
  Receive Date: 20100106
  Receipt Date: 20091224
  Transmission Date: 20100710
  Serious: Yes (Other)
  Sender: FDA-Public Use
  Company Number: PHHY2009JP59351

PATIENT
  Sex: Female

DRUGS (12)
  1. ICL670A ICL+DISTAB [Suspect]
     Indication: THALASSAEMIA BETA
     Dosage: 500 MG DAILY
     Route: 048
     Dates: start: 20080806, end: 20081014
  2. ICL670A ICL+DISTAB [Suspect]
     Indication: IRON OVERLOAD
     Dosage: 1000 MG DAILY
     Route: 048
     Dates: start: 20081015, end: 20081104
  3. ICL670A ICL+DISTAB [Suspect]
     Dosage: 500 MG DAILY
     Route: 048
     Dates: start: 20081105, end: 20081216
  4. ICL670A ICL+DISTAB [Suspect]
     Dosage: 1000 MG DAILY
     Route: 048
     Dates: start: 20081217, end: 20090106
  5. ICL670A ICL+DISTAB [Suspect]
     Dosage: 500 MG DAILY
     Route: 048
     Dates: start: 20090107, end: 20090218
  6. ICL670A ICL+DISTAB [Suspect]
     Dosage: 1000 MG DAILY
     Route: 048
     Dates: start: 20090219, end: 20090617
  7. ICL670A ICL+DISTAB [Suspect]
     Dosage: 1250 MG DAILY
     Route: 048
     Dates: start: 20090618, end: 20090715
  8. ICL670A ICL+DISTAB [Suspect]
     Dosage: 1000 MG DAILY
     Route: 048
     Dates: start: 20090716, end: 20090805
  9. ICL670A ICL+DISTAB [Suspect]
     Dosage: 1250 MG DAILY
     Route: 048
     Dates: start: 20090806, end: 20090806
  10. DESFERAL [Concomitant]
     Indication: IRON OVERLOAD
     Dosage: 71 MG, UNK
     Route: 030
     Dates: start: 20070228, end: 20070716
  11. IRRADIATED RED CELLS CONCENTRATES - LEUKOCYTES REDUCED (RCC-LR) [Concomitant]
     Dosage: 2 UNITS EVERY 4 WEEKS
     Dates: start: 20080903, end: 20090806
  12. ALOSITOL [Concomitant]

REACTIONS (2)
  - CARDIAC FAILURE [None]
  - HEPATIC FUNCTION ABNORMAL [None]
